FAERS Safety Report 10004084 (Version 2)
Quarter: 2014Q2

REPORT INFORMATION
  Report Type: Report from Study
  Country: US (occurrence: US)
  Receive Date: 20140312
  Receipt Date: 20140408
  Transmission Date: 20141212
  Serious: Yes (Other)
  Sender: FDA-Public Use
  Company Number: PHEH2014US004842

PATIENT
  Sex: Female

DRUGS (3)
  1. TEGRETOL [Suspect]
     Dosage: UNK UKN, UNK
     Dates: start: 201109
  2. TEGRETOL [Suspect]
     Dosage: UNK
  3. CARBAMAZEPINE [Suspect]
     Dosage: UNK UKN, UNK

REACTIONS (1)
  - Convulsion [Unknown]
